FAERS Safety Report 23182005 (Version 1)
Quarter: 2023Q4

REPORT INFORMATION
  Report Type: Spontaneous
  Country: US (occurrence: None)
  Receive Date: 20231113
  Receipt Date: 20231113
  Transmission Date: 20240109
  Serious: No
  Sender: FDA-Public Use
  Company Number: None

PATIENT
  Age: 59 Year
  Sex: Female
  Weight: 62.14 kg

DRUGS (2)
  1. SIMPONI ARIA [Suspect]
     Active Substance: GOLIMUMAB
     Indication: Rheumatoid arthritis
     Dosage: INFUSE 124MG INTRAVENOUSLY AT WEEK 0 AND WEEK 4 AS DIRECTED?
     Route: 042
     Dates: start: 202104
  2. SIMPONI ARIA [Suspect]
     Active Substance: GOLIMUMAB
     Indication: Vitamin D deficiency

REACTIONS (1)
  - Road traffic accident [None]
